FAERS Safety Report 5842617-3 (Version None)
Quarter: 2008Q3

REPORT INFORMATION
  Report Type: 
  Country: None (occurrence: None)
  Receive Date: 20080812
  Receipt Date: 20080807
  Transmission Date: 20090109
  Serious: Yes (Other)
  Sender: FDA-Public Use
  Company Number: AU-PFIZER INC-2008066640

PATIENT
  Age: 56 Year
  Sex: Female

DRUGS (5)
  1. LIPITOR [Suspect]
     Dates: start: 20030101, end: 20080804
  2. MICARDIS [Concomitant]
  3. MODURETIC 5-50 [Concomitant]
  4. PARIET [Concomitant]
  5. SERETIDE [Concomitant]

REACTIONS (3)
  - BLOOD CREATINE PHOSPHOKINASE INCREASED [None]
  - BRONCHOSPASM [None]
  - MYALGIA [None]
